FAERS Safety Report 26138193 (Version 2)
Quarter: 2025Q4

REPORT INFORMATION
  Report Type: Spontaneous
  Country: JP (occurrence: JP)
  Receive Date: 20251210
  Receipt Date: 20251224
  Transmission Date: 20260117
  Serious: Yes (Hospitalization, Other)
  Sender: ALVOGEN
  Company Number: JP-LOTUSPHARMA-20251204-LOTUSPHARMA-001128

PATIENT
  Age: 83 Year
  Sex: Female

DRUGS (1)
  1. LENALIDOMIDE [Suspect]
     Active Substance: LENALIDOMIDE
     Indication: 5q minus syndrome
     Route: 048
     Dates: start: 20240913

REACTIONS (3)
  - Compression fracture [Unknown]
  - Product dose omission issue [Unknown]
  - Off label use [Unknown]
